FAERS Safety Report 5372884-4 (Version None)
Quarter: 2007Q2

REPORT INFORMATION
  Report Type: 
  Country: None (occurrence: None)
  Receive Date: 20070621
  Receipt Date: 20070407
  Transmission Date: 20071010
  Serious: No
  Sender: FDA-Public Use
  Company Number: US-CVT-070083

PATIENT
  Sex: Male

DRUGS (2)
  1. RANEXA [Suspect]
     Indication: ANGINA PECTORIS
     Dosage: ORAL
     Route: 048
  2. LYRICA [Suspect]
     Dosage: 100 MG, QD, ORAL; 200 MG, QD, ORAL; 100 MG, QD, ORAL
     Route: 048

REACTIONS (1)
  - JOINT SWELLING [None]
